FAERS Safety Report 7027338-6 (Version None)
Quarter: 2010Q4

REPORT INFORMATION
  Report Type: 
  Country: None (occurrence: None)
  Receive Date: 20101004
  Receipt Date: 20100922
  Transmission Date: 20110411
  Serious: Yes (Death)
  Sender: FDA-Public Use
  Company Number: PHHY2010MX23948

PATIENT
  Sex: Male

DRUGS (2)
  1. ZOMETA [Suspect]
     Indication: HYPERCALCAEMIA OF MALIGNANCY
     Dosage: 4 MG, QMO
     Route: 042
     Dates: start: 20080701
  2. ZOLADEX [Concomitant]
     Indication: PROSTATE CANCER
     Dosage: EVERY 3 MONTHS

REACTIONS (3)
  - METASTASES TO LIVER [None]
  - METASTASES TO SPLEEN [None]
  - PROSTATE CANCER [None]
